FAERS Safety Report 23758483 (Version 1)
Quarter: 2024Q2

REPORT INFORMATION
  Report Type: Report from Study
  Country: US (occurrence: US)
  Receive Date: 20240418
  Receipt Date: 20240418
  Transmission Date: 20240716
  Serious: No
  Sender: FDA-Public Use
  Company Number: US-ALXN-202404USA001142US

PATIENT
  Sex: Female
  Weight: 136.05 kg

DRUGS (1)
  1. ULTOMIRIS [Suspect]
     Active Substance: RAVULIZUMAB-CWVZ
     Indication: Hereditary haemolytic anaemia
     Dosage: 3600 MILLIGRAM, Q8W
     Route: 042
     Dates: start: 20190319

REACTIONS (2)
  - Weight abnormal [Unknown]
  - Off label use [Unknown]
